FAERS Safety Report 23932897 (Version 1)
Quarter: 2024Q2

REPORT INFORMATION
  Report Type: Spontaneous
  Country: US (occurrence: None)
  Receive Date: 20240601
  Receipt Date: 20240601
  Transmission Date: 20240717
  Serious: Yes (Hospitalization)
  Sender: FDA-Public Use
  Company Number: None

PATIENT
  Age: 61 Year
  Sex: Female
  Weight: 78.6 kg

DRUGS (1)
  1. PEMBROLIZUMAB [Suspect]
     Active Substance: PEMBROLIZUMAB
     Dates: end: 20240509

REACTIONS (9)
  - Mastitis [None]
  - Vomiting [None]
  - Post procedural infection [None]
  - Neutropenia [None]
  - Leukopenia [None]
  - Rash [None]
  - Blister [None]
  - Nausea [None]
  - Drug hypersensitivity [None]

NARRATIVE: CASE EVENT DATE: 20240520
